FAERS Safety Report 16246096 (Version 2)
Quarter: 2019Q2

REPORT INFORMATION
  Report Type: Report from Study
  Country: US (occurrence: US)
  Receive Date: 20190426
  Receipt Date: 20190529
  Transmission Date: 20190711
  Serious: Yes (Death)
  Sender: FDA-Public Use
  Company Number: US-EXELIXIS-XL18419019835

PATIENT
  Age: 61 Year
  Sex: Female
  Weight: 55.8 kg

DRUGS (3)
  1. HYDROCORTISONE. [Concomitant]
     Active Substance: HYDROCORTISONE
  2. XL184 [Suspect]
     Active Substance: CABOZANTINIB
     Indication: ENDOMETRIAL ADENOCARCINOMA
     Dosage: 40 MG, QD
     Route: 048
     Dates: start: 20181026
  3. NIVOLUMAB [Suspect]
     Active Substance: NIVOLUMAB
     Indication: ENDOMETRIAL ADENOCARCINOMA
     Dosage: 240 MG, OVER 60 MIN ON DAYS 1 AND 15
     Route: 042
     Dates: start: 20181026

REACTIONS (1)
  - Endometrial adenocarcinoma [Fatal]

NARRATIVE: CASE EVENT DATE: 20190315
